FAERS Safety Report 9524821 (Version 2)
Quarter: 2013Q3

REPORT INFORMATION
  Report Type: Spontaneous
  Country: US (occurrence: US)
  Receive Date: 20130916
  Receipt Date: 20130916
  Transmission Date: 20140515
  Serious: Yes (Other)
  Sender: FDA-Public Use
  Company Number: US-PFIZER INC-2013256616

PATIENT
  Age: 31 Year
  Sex: Female
  Weight: 72.58 kg

DRUGS (2)
  1. CHILDREN^S MOTRIN [Suspect]
     Dosage: 3 DROPS ON THE TONGUE ONE TIME
     Route: 048
     Dates: start: 20130711, end: 20130711
  2. ORAL CONTRACEPTIVE NOS [Concomitant]
     Indication: CONTRACEPTION
     Dosage: UNK
     Dates: start: 2005

REACTIONS (3)
  - Off label use [Recovered/Resolved]
  - Choking [Recovered/Resolved]
  - Product taste abnormal [Recovered/Resolved]
